FAERS Safety Report 14742447 (Version 1)
Quarter: 2018Q2

REPORT INFORMATION
  Report Type: Spontaneous
  Country: JP (occurrence: JP)
  Receive Date: 20180410
  Receipt Date: 20180410
  Transmission Date: 20180711
  Serious: Yes (Other)
  Sender: FDA-Public Use
  Company Number: JP-PFIZER INC-2018138269

PATIENT
  Sex: Male

DRUGS (1)
  1. CABASER [Suspect]
     Active Substance: CABERGOLINE
     Indication: VOLUME BLOOD
     Dosage: UNK, ONCE WEEKLY
     Route: 048

REACTIONS (2)
  - Heart valve stenosis [Unknown]
  - Product use in unapproved indication [Unknown]
